FAERS Safety Report 5406776-9 (Version None)
Quarter: 2007Q3

REPORT INFORMATION
  Report Type: 
  Country: None (occurrence: None)
  Receive Date: 20070807
  Receipt Date: 20070803
  Transmission Date: 20080115
  Serious: Yes (Death)
  Sender: FDA-Public Use
  Company Number: PHNR2007AU01424

PATIENT
  Sex: Female

DRUGS (3)
  1. NEORAL [Suspect]
  2. CELEBREX [Suspect]
  3. DIURETICS [Suspect]

REACTIONS (1)
  - SUDDEN DEATH [None]
